FAERS Safety Report 9701960 (Version 1)
Quarter: 2013Q4

REPORT INFORMATION
  Report Type: Spontaneous
  Country: US (occurrence: None)
  Receive Date: 20131120
  Receipt Date: 20131120
  Transmission Date: 20140711
  Serious: Yes (Death)
  Sender: FDA-Public Use
  Company Number: None

PATIENT
  Age: 82 Year
  Sex: Male
  Weight: 66.23 kg

DRUGS (7)
  1. EXJADE [Suspect]
     Indication: MYELODYSPLASTIC SYNDROME
     Route: 048
     Dates: start: 20130730, end: 20131116
  2. FINASTERIDE [Concomitant]
  3. GABAPENTIN [Concomitant]
  4. TEMAZEPAM [Concomitant]
  5. LEVOTHYROXIN [Concomitant]
  6. GLIPIZIDE [Concomitant]
  7. FOLIC ACID [Concomitant]

REACTIONS (2)
  - Dyspnoea [None]
  - Hepatic failure [None]
